FAERS Safety Report 22066287 (Version 1)
Quarter: 2023Q1

REPORT INFORMATION
  Report Type: Spontaneous
  Country: US (occurrence: None)
  Receive Date: 20230305
  Receipt Date: 20230305
  Transmission Date: 20230418
  Serious: No
  Sender: FDA-Public Use
  Company Number: None

PATIENT
  Sex: Male
  Weight: 79.38 kg

DRUGS (10)
  1. WELIREG [Suspect]
     Active Substance: BELZUTIFAN
     Indication: Renal cancer
     Dosage: FREQUENCY : DAILY;?
     Route: 048
     Dates: start: 20221021, end: 20230305
  2. ATORVASTATIN [Concomitant]
  3. FINASTERIDE [Concomitant]
  4. MAGNESIUM OXIDE [Concomitant]
  5. MYCOPHENOLATE [Concomitant]
  6. PREDNISONE [Concomitant]
  7. TACROLIMUS [Concomitant]
  8. TAMSULOSIN [Concomitant]
  9. VITAMIN B12 [Concomitant]
  10. ZETIA [Concomitant]

REACTIONS (1)
  - Drug ineffective [None]
